FAERS Safety Report 8687201 (Version 2)
Quarter: 2014Q1

REPORT INFORMATION
  Report Type: Report from Study
  Country: AR (occurrence: AR)
  Receive Date: 20120727
  Receipt Date: 20140124
  Transmission Date: 20141002
  Serious: No
  Sender: FDA-Public Use
  Company Number: PHHY2012AR058040

PATIENT
  Age: 90 Year
  Sex: Female

DRUGS (2)
  1. EXELON [Suspect]
     Indication: DEMENTIA ALZHEIMER^S TYPE
     Dosage: 2 DF (3 MG), DAILY
     Route: 048
     Dates: end: 20120628
  2. EXELON [Suspect]
     Dosage: 6 MG, PER DAY

REACTIONS (7)
  - Regressive behaviour [Not Recovered/Not Resolved]
  - Balance disorder [Not Recovered/Not Resolved]
  - Muscle rigidity [Recovering/Resolving]
  - Coordination abnormal [Recovering/Resolving]
  - General physical health deterioration [Recovering/Resolving]
  - Gait disturbance [Recovering/Resolving]
  - Incorrect dose administered [Unknown]
